FAERS Safety Report 22164887 (Version 1)
Quarter: 2023Q2

REPORT INFORMATION
  Report Type: Spontaneous
  Country: US (occurrence: US)
  Receive Date: 20230403
  Receipt Date: 20230403
  Transmission Date: 20230721
  Serious: No
  Sender: FDA-Public Use
  Company Number: US-Accord-282556

PATIENT
  Age: 73 Year
  Sex: Female
  Weight: 62.60 kg

DRUGS (4)
  1. CARBIDOPA\LEVODOPA [Suspect]
     Active Substance: CARBIDOPA\LEVODOPA
     Indication: Parkinson^s disease
     Dosage: DOSE: 25/100 MG, DAILY
     Route: 048
  2. LEVOTHYROXINE [Concomitant]
     Active Substance: LEVOTHYROXINE
     Dosage: STRENGTH: 75 MG
  3. AMANTADINE [Concomitant]
     Active Substance: AMANTADINE
     Dosage: STRENGTH: 100 MG
  4. CARBIDOPA [Concomitant]
     Active Substance: CARBIDOPA
     Dosage: STRENGTH: 25 MG

REACTIONS (4)
  - Abdominal discomfort [Unknown]
  - Abdominal distension [Unknown]
  - Weight decreased [Unknown]
  - Diarrhoea [Unknown]
